FAERS Safety Report 8317958-0 (Version None)
Quarter: 2012Q2

REPORT INFORMATION
  Report Type: 
  Country: None (occurrence: None)
  Receive Date: 20120427
  Receipt Date: 20120424
  Transmission Date: 20120825
  Serious: Yes (Other)
  Sender: FDA-Public Use
  Company Number: CN-ASTRAZENECA-2012SE26645

PATIENT
  Age: 10 Year
  Sex: Female

DRUGS (2)
  1. KANGFUXIN [Concomitant]
     Indication: DUODENAL ULCER
     Route: 048
  2. OMEPRAZOLE MAGNESIUM [Suspect]
     Indication: DUODENAL ULCER
     Route: 048
     Dates: start: 20120413, end: 20120423

REACTIONS (4)
  - DYSPNOEA [None]
  - COUGH [None]
  - PAIN IN EXTREMITY [None]
  - MUSCULAR WEAKNESS [None]
